FAERS Safety Report 11329038 (Version 1)
Quarter: 2015Q3

REPORT INFORMATION
  Report Type: Report from Study
  Country: US (occurrence: US)
  Receive Date: 20150802
  Receipt Date: 20150802
  Transmission Date: 20151125
  Serious: No
  Sender: FDA-Public Use
  Company Number: PHEH2014US022195

PATIENT
  Age: 3 Year
  Sex: Male

DRUGS (10)
  1. LAMICTAL [Concomitant]
     Active Substance: LAMOTRIGINE
     Indication: PRODUCT USED FOR UNKNOWN INDICATION
     Route: 065
  2. VIMPAT [Concomitant]
     Active Substance: LACOSAMIDE
     Indication: PRODUCT USED FOR UNKNOWN INDICATION
     Route: 065
  3. AFINITOR [Suspect]
     Active Substance: EVEROLIMUS
     Dosage: 5 MG, QD
     Route: 048
     Dates: start: 20141031
  4. AFINITOR [Suspect]
     Active Substance: EVEROLIMUS
     Dosage: 3 MG, UNK
     Route: 065
  5. PROBIOTICS NOS [Concomitant]
     Active Substance: PROBIOTICS NOS
     Indication: PRODUCT USED FOR UNKNOWN INDICATION
     Route: 065
  6. MIRALAX [Concomitant]
     Active Substance: POLYETHYLENE GLYCOL 3350
     Indication: PRODUCT USED FOR UNKNOWN INDICATION
     Route: 065
  7. MULTI VITAMIN [Concomitant]
     Active Substance: VITAMINS
     Indication: PRODUCT USED FOR UNKNOWN INDICATION
     Route: 065
  8. AFINITOR [Suspect]
     Active Substance: EVEROLIMUS
     Dosage: 7.5 MG, UNK
     Route: 065
  9. AFINITOR [Suspect]
     Active Substance: EVEROLIMUS
     Indication: BRAIN NEOPLASM BENIGN
     Dosage: UNK
     Route: 048
     Dates: start: 20141016, end: 20141029
  10. LISINOPRIL. [Concomitant]
     Active Substance: LISINOPRIL
     Indication: BLOOD PRESSURE MEASUREMENT
     Route: 065

REACTIONS (14)
  - Chapped lips [Unknown]
  - Feeling cold [Unknown]
  - Decreased appetite [Unknown]
  - Fatigue [Unknown]
  - Blood cholesterol increased [Recovered/Resolved]
  - Hypotension [Recovered/Resolved]
  - Insomnia [Unknown]
  - Vomiting [Unknown]
  - Wrong technique in product usage process [Unknown]
  - Nasopharyngitis [Recovered/Resolved]
  - Asthenia [Unknown]
  - Stomatitis [Unknown]
  - Dizziness [Unknown]
  - Drug level decreased [Unknown]

NARRATIVE: CASE EVENT DATE: 20141104
